FAERS Safety Report 10927013 (Version 1)
Quarter: 2015Q1

REPORT INFORMATION
  Report Type: Spontaneous
  Country: US (occurrence: None)
  Receive Date: 20150316
  Receipt Date: 20150316
  Transmission Date: 20150721
  Serious: Yes (Other)
  Sender: FDA-Public Use
  Company Number: CIO15013917

PATIENT
  Sex: Female

DRUGS (1)
  1. METAMUCIL THERAPY FOR REGULARITY [Suspect]
     Active Substance: PSYLLIUM HUSK
     Indication: PAIN
     Dosage: 1 TBSP, EVENING, ORAL
     Route: 048
     Dates: start: 20150226, end: 20150226

REACTIONS (10)
  - Wrong technique in drug usage process [None]
  - Self-medication [None]
  - Pharyngeal oedema [None]
  - Incorrect dose administered [None]
  - Dyspnoea [None]
  - Nausea [None]
  - Chest discomfort [None]
  - Intentional overdose [None]
  - Hypersensitivity [None]
  - Throat tightness [None]

NARRATIVE: CASE EVENT DATE: 20150226
